FAERS Safety Report 17400749 (Version 1)
Quarter: 2020Q1

REPORT INFORMATION
  Report Type: Spontaneous
  Country: PL (occurrence: PL)
  Receive Date: 20200211
  Receipt Date: 20200211
  Transmission Date: 20200409
  Serious: Yes (Life-Threatening, Other)
  Sender: FDA-Public Use
  Company Number: PL-ACCORD-052283

PATIENT
  Age: 63 Year
  Sex: Female
  Weight: 80 kg

DRUGS (4)
  1. CISPLATIN. [Suspect]
     Active Substance: CISPLATIN
     Indication: LUNG CARCINOMA CELL TYPE UNSPECIFIED STAGE 0
     Dosage: 55 (UNIT NOT SPECIFIED), ALSO RECEIVED TILL 05-JAN-2017
     Route: 042
     Dates: start: 20161025, end: 20170307
  2. CISPLATIN. [Suspect]
     Active Substance: CISPLATIN
     Indication: LUNG CARCINOMA CELL TYPE UNSPECIFIED STAGE 0
     Dosage: 55 (UNIT NOT SPECIFIED),
     Route: 042
     Dates: start: 20161025, end: 20170105
  3. ETOPOSIDE. [Suspect]
     Active Substance: ETOPOSIDE
     Indication: LUNG CARCINOMA CELL TYPE UNSPECIFIED STAGE 0
     Dosage: 185 (UNIT NOT SPECIFIED), ALSO RECEIVED TILL 05-JAN-2017
     Route: 042
     Dates: start: 20161025, end: 20170307
  4. ETOPOSIDE. [Suspect]
     Active Substance: ETOPOSIDE
     Indication: LUNG CARCINOMA CELL TYPE UNSPECIFIED STAGE 0
     Dosage: 185 (UNIT NOT SPECIFIED),
     Route: 042
     Dates: start: 20161025, end: 20170105

REACTIONS (2)
  - Anaemia [Unknown]
  - Neutropenia [Unknown]

NARRATIVE: CASE EVENT DATE: 20170124
